FAERS Safety Report 4847800-1 (Version None)
Quarter: 2005Q4

REPORT INFORMATION
  Report Type: 
  Country: None (occurrence: None)
  Receive Date: 20051205
  Receipt Date: 20051124
  Transmission Date: 20060501
  Serious: Yes (Hospitalization)
  Sender: FDA-Public Use
  Company Number: ZONI002226

PATIENT
  Age: 28 Year
  Sex: Female
  Weight: 56 kg

DRUGS (7)
  1. ZONEGRAN [Suspect]
     Indication: EPILEPSY
     Dosage: SEE IMAGE, ORAL
     Route: 048
     Dates: start: 20050101, end: 20050101
  2. ZONEGRAN [Suspect]
     Indication: EPILEPSY
     Dosage: SEE IMAGE, ORAL
     Route: 048
     Dates: start: 20050101
  3. PHENOBARBITAL TAB [Concomitant]
  4. LAMOTRIGINE [Concomitant]
  5. ACETYLSALICYLIC ACID SRT [Concomitant]
  6. NEXIUM [Concomitant]
  7. FERRIC SULFATE [Concomitant]

REACTIONS (3)
  - STATUS EPILEPTICUS [None]
  - VISUAL DISTURBANCE [None]
  - VISUAL EVOKED POTENTIALS ABNORMAL [None]
